FAERS Safety Report 21945156 (Version 1)
Quarter: 2023Q1

REPORT INFORMATION
  Report Type: Spontaneous
  Country: US (occurrence: US)
  Receive Date: 20230202
  Receipt Date: 20230202
  Transmission Date: 20230417
  Serious: No
  Sender: FDA-Public Use
  Company Number: US-ELI_LILLY_AND_COMPANY-US202301008538

PATIENT
  Age: 72 Year
  Sex: Female

DRUGS (12)
  1. MOUNJARO [Suspect]
     Active Substance: TIRZEPATIDE
     Indication: Hypertension
     Dosage: 2.5 MG, UNKNOWN
     Route: 058
  2. MOUNJARO [Suspect]
     Active Substance: TIRZEPATIDE
     Indication: Hypertension
     Dosage: 2.5 MG, UNKNOWN
     Route: 058
  3. MOUNJARO [Suspect]
     Active Substance: TIRZEPATIDE
     Indication: Cardiac disorder
  4. MOUNJARO [Suspect]
     Active Substance: TIRZEPATIDE
     Indication: Cardiac disorder
  5. MOUNJARO [Suspect]
     Active Substance: TIRZEPATIDE
     Indication: Overweight
  6. MOUNJARO [Suspect]
     Active Substance: TIRZEPATIDE
     Indication: Overweight
  7. MOUNJARO [Suspect]
     Active Substance: TIRZEPATIDE
     Indication: Overweight
  8. MOUNJARO [Suspect]
     Active Substance: TIRZEPATIDE
     Indication: Overweight
  9. MOUNJARO [Suspect]
     Active Substance: TIRZEPATIDE
     Indication: Body mass index
  10. MOUNJARO [Suspect]
     Active Substance: TIRZEPATIDE
     Indication: Body mass index
  11. MOUNJARO [Suspect]
     Active Substance: TIRZEPATIDE
     Indication: Blood pressure measurement
  12. MOUNJARO [Suspect]
     Active Substance: TIRZEPATIDE
     Indication: Blood pressure measurement

REACTIONS (4)
  - Blood glucose increased [Unknown]
  - Off label use [Unknown]
  - Product administered at inappropriate site [Unknown]
  - Wrong technique in product usage process [Unknown]

NARRATIVE: CASE EVENT DATE: 20230122
